FAERS Safety Report 9853613 (Version 3)
Quarter: 2014Q1

REPORT INFORMATION
  Report Type: Spontaneous
  Country: IT (occurrence: IT)
  Receive Date: 20140129
  Receipt Date: 20140205
  Transmission Date: 20141002
  Serious: No
  Sender: FDA-Public Use
  Company Number: IT-PFIZER INC-2014010756

PATIENT
  Age: 48 Year
  Sex: Female

DRUGS (1)
  1. DOSTINEX [Suspect]
     Indication: HYPERPROLACTINAEMIA
     Dosage: 0.25 MG, EVERY 6 DAYS
     Route: 048
     Dates: end: 201312

REACTIONS (2)
  - Tachycardia [Recovered/Resolved]
  - Hypoaesthesia [Recovered/Resolved]
